FAERS Safety Report 7411768-4 (Version None)
Quarter: 2011Q2

REPORT INFORMATION
  Report Type: 
  Country: None (occurrence: None)
  Receive Date: 20110413
  Receipt Date: 20110105
  Transmission Date: 20111010
  Serious: No
  Sender: FDA-Public Use
  Company Number: US-BRISTOL-MYERS SQUIBB COMPANY-15471824

PATIENT
  Age: 80 Year
  Sex: Female

DRUGS (9)
  1. ACTOS [Concomitant]
  2. LIPITOR [Concomitant]
  3. HYDROCHLOROTHIAZIDE [Concomitant]
  4. GLUCOPHAGE [Concomitant]
  5. ERBITUX [Suspect]
     Indication: COLORECTAL CANCER
     Dosage: NO OF INF:20
     Dates: start: 20100801
  6. MAGNESIUM [Concomitant]
  7. MICRONASE [Concomitant]
  8. NEURONTIN [Concomitant]
  9. ASPIRIN [Concomitant]

REACTIONS (1)
  - NAIL DISORDER [None]
